FAERS Safety Report 7261164-8 (Version None)
Quarter: 2011Q1

REPORT INFORMATION
  Report Type: 
  Country: None (occurrence: None)
  Receive Date: 20110130
  Receipt Date: 20100924
  Transmission Date: 20110831
  Serious: No
  Sender: FDA-Public Use
  Company Number: US-ABBOTT-10P-163-0674131-00

PATIENT
  Sex: Female
  Weight: 70.37 kg

DRUGS (3)
  1. SORIATANE [Concomitant]
     Indication: PSORIASIS
  2. HUMIRA [Suspect]
     Indication: PSORIATIC ARTHROPATHY
  3. HUMIRA [Suspect]
     Indication: PSORIASIS
     Dates: start: 20100501

REACTIONS (1)
  - ANTINUCLEAR ANTIBODY POSITIVE [None]
